FAERS Safety Report 7058955-5 (Version None)
Quarter: 2010Q4

REPORT INFORMATION
  Report Type: 
  Country: None (occurrence: None)
  Receive Date: 20101025
  Receipt Date: 20101014
  Transmission Date: 20110411
  Serious: Yes (Hospitalization)
  Sender: FDA-Public Use
  Company Number: US-BIOGENIDEC-2010BI012303

PATIENT
  Age: 43 Year
  Sex: Female

DRUGS (1)
  1. TYSABRI [Suspect]
     Indication: MULTIPLE SCLEROSIS
     Route: 042
     Dates: start: 20070418

REACTIONS (10)
  - BACK PAIN [None]
  - CATHETER SITE PAIN [None]
  - DEVICE MALFUNCTION [None]
  - DIPLEGIA [None]
  - GASTRIC BANDING [None]
  - HEADACHE [None]
  - MULTIPLE SCLEROSIS RELAPSE [None]
  - OVERWEIGHT [None]
  - PAIN [None]
  - WEIGHT DECREASED [None]
